FAERS Safety Report 13814324 (Version 1)
Quarter: 2017Q3

REPORT INFORMATION
  Report Type: Spontaneous
  Country: US (occurrence: US)
  Receive Date: 20170728
  Receipt Date: 20170728
  Transmission Date: 20171127
  Serious: Yes (Disabling)
  Sender: FDA-Public Use
  Company Number: None

PATIENT
  Age: 61 Year
  Sex: Male

DRUGS (1)
  1. TICE BCG [Suspect]
     Active Substance: BACILLUS CALMETTE-GUERIN SUBSTRAIN TICE LIVE ANTIGEN
     Indication: BLADDER CANCER
     Dosage: OTHER FREQUENCY:WEEKLY X6;?
     Route: 043
     Dates: start: 20170109, end: 20170217

REACTIONS (5)
  - Arthritis [None]
  - Prostatitis [None]
  - Prostatic specific antigen increased [None]
  - Arthralgia [None]
  - Disability [None]

NARRATIVE: CASE EVENT DATE: 20170217
